FAERS Safety Report 7685845-7 (Version None)
Quarter: 2011Q3

REPORT INFORMATION
  Report Type: 
  Country: None (occurrence: None)
  Receive Date: 20110815
  Receipt Date: 20110815
  Transmission Date: 20111222
  Serious: Yes (Other)
  Sender: FDA-Public Use
  Company Number: None

PATIENT
  Sex: Female
  Weight: 68.0396 kg

DRUGS (3)
  1. EFFEXOR XR [Suspect]
     Indication: BIPOLAR DISORDER
     Dosage: 1 CAP/DAY PM EVERY DAY
  2. 1000 DEPAKOTE ER [Concomitant]
  3. EFFEXOR XR [Suspect]
     Indication: BIPOLAR DISORDER
     Dosage: 1 CAP/DAY AM EVERY DAY

REACTIONS (5)
  - TRANSFUSION [None]
  - BLOOD PRESSURE DECREASED [None]
  - HIP ARTHROPLASTY [None]
  - POST PROCEDURAL COMPLICATION [None]
  - UNEVALUABLE EVENT [None]
